FAERS Safety Report 24334986 (Version 4)
Quarter: 2024Q4

REPORT INFORMATION
  Report Type: Spontaneous
  Country: JP (occurrence: JP)
  Receive Date: 20240918
  Receipt Date: 20241202
  Transmission Date: 20250115
  Serious: Yes (Other)
  Sender: MERCK
  Company Number: JP-MSD-M2024-37197

PATIENT
  Age: 71 Year
  Sex: Male

DRUGS (4)
  1. IPRAGLIFLOZIN L-PROLINE\SITAGLIPTIN PHOSPHATE [Suspect]
     Active Substance: IPRAGLIFLOZIN L-PROLINE\SITAGLIPTIN PHOSPHATE
     Indication: Type 2 diabetes mellitus
     Dosage: UNK
     Route: 048
     Dates: end: 2024
  2. IPRAGLIFLOZIN L-PROLINE\SITAGLIPTIN PHOSPHATE [Suspect]
     Active Substance: IPRAGLIFLOZIN L-PROLINE\SITAGLIPTIN PHOSPHATE
     Dosage: 1 DOSAGE FORM, QD
     Route: 048
     Dates: start: 20240815, end: 20240912
  3. IPRAGLIFLOZIN L-PROLINE\SITAGLIPTIN PHOSPHATE [Suspect]
     Active Substance: IPRAGLIFLOZIN L-PROLINE\SITAGLIPTIN PHOSPHATE
     Dosage: 2 DOSAGE FORM, QD
     Route: 048
     Dates: start: 20240913, end: 20241017
  4. JANUVIA [Suspect]
     Active Substance: SITAGLIPTIN PHOSPHATE
     Indication: Type 2 diabetes mellitus
     Dosage: 50 MILLIGRAM, QD
     Route: 048
     Dates: start: 20240815, end: 20240912

REACTIONS (3)
  - Diabetes mellitus inadequate control [Unknown]
  - Therapeutic product effect incomplete [Unknown]
  - Prescribed overdose [Unknown]

NARRATIVE: CASE EVENT DATE: 20240901
